FAERS Safety Report 5736654-7 (Version None)
Quarter: 2008Q2

REPORT INFORMATION
  Report Type: 
  Country: None (occurrence: None)
  Receive Date: 20080513
  Receipt Date: 20080505
  Transmission Date: 20081010
  Serious: Yes (Other)
  Sender: FDA-Public Use
  Company Number: US-PFIZER INC-2006140180

PATIENT
  Sex: Female

DRUGS (2)
  1. QUINAPRIL HCL [Suspect]
     Route: 048
  2. ATENOLOL [Concomitant]

REACTIONS (3)
  - BLOOD PRESSURE INCREASED [None]
  - EPISTAXIS [None]
  - SINUS DISORDER [None]
